FAERS Safety Report 24650844 (Version 1)
Quarter: 2024Q4

REPORT INFORMATION
  Report Type: Spontaneous
  Country: TR (occurrence: TR)
  Receive Date: 20241122
  Receipt Date: 20241122
  Transmission Date: 20250115
  Serious: Yes (Life-Threatening, Hospitalization, Other)
  Sender: ALKEM
  Company Number: TR-ALKEM LABORATORIES LIMITED-TR-ALKEM-2024-07033

PATIENT
  Age: 20 Year
  Sex: Male

DRUGS (1)
  1. OLANZAPINE [Suspect]
     Active Substance: OLANZAPINE
     Indication: Product used for unknown indication
     Dosage: 840 MILLIGRAM, TABLET
     Route: 065

REACTIONS (4)
  - Coma scale abnormal [Recovering/Resolving]
  - Drug level increased [Unknown]
  - Suicide attempt [Unknown]
  - Overdose [Unknown]
